FAERS Safety Report 8587852 (Version 2)
Quarter: 2012Q4

REPORT INFORMATION
  Report Type: 
  Country: US (occurrence: US)
  Receive Date: 20120531
  Receipt Date: 20121126
  Transmission Date: 20130627
  Serious: Yes (Other)
  Sender: FDA-Public Use
  Company Number: PHEH2012US011001

PATIENT
  Sex: Female
  Weight: 77.98 kg

DRUGS (8)
  1. GILENYA [Suspect]
     Dosage: 0.5 mg, QD
     Route: 048
  2. ZOCOR [Concomitant]
     Dosage: 20 mg, UNK
  3. MULTIVITAMIN [Concomitant]
  4. FISH OIL [Concomitant]
  5. VITAMIN D [Concomitant]
     Dosage: 1000 U, UNK
  6. CALCIUM WITH VITAMIN D [Concomitant]
  7. ZYRTEC [Concomitant]
     Dosage: 10 mg, UNK
     Route: 048
  8. TRICOR [Concomitant]
     Dosage: 48 mg, UNK
     Route: 048

REACTIONS (4)
  - Liver disorder [Unknown]
  - Muscle spasms [Unknown]
  - Hypoaesthesia [Unknown]
  - Paraesthesia [Unknown]
